FAERS Safety Report 17735531 (Version 1)
Quarter: 2020Q2

REPORT INFORMATION
  Report Type: Spontaneous
  Country: GB (occurrence: GB)
  Receive Date: 20200501
  Receipt Date: 20200501
  Transmission Date: 20200714
  Serious: Yes (Other)
  Sender: FDA-Public Use
  Company Number: GB-TEVA-2020-GB-1227865

PATIENT
  Age: 33 Year
  Sex: Female
  Weight: 53 kg

DRUGS (2)
  1. LEVEST [Concomitant]
  2. CLARITHROMYCIN. [Suspect]
     Active Substance: CLARITHROMYCIN
     Indication: OTITIS MEDIA
     Dosage: 2 DOSAGE FORMS
     Route: 048
     Dates: start: 202002, end: 202002

REACTIONS (3)
  - Dysgeusia [Recovered/Resolved]
  - Insomnia [Recovered/Resolved]
  - Fatigue [Recovered/Resolved]

NARRATIVE: CASE EVENT DATE: 202002
